FAERS Safety Report 12416200 (Version 3)
Quarter: 2016Q3

REPORT INFORMATION
  Report Type: Spontaneous
  Country: PE (occurrence: PE)
  Receive Date: 20160530
  Receipt Date: 20160819
  Transmission Date: 20161109
  Serious: Yes (Other)
  Sender: FDA-Public Use
  Company Number: PE-PFIZER INC-2016271836

PATIENT
  Age: 77 Year
  Sex: Female

DRUGS (3)
  1. KRYTANTEK [Suspect]
     Active Substance: BRIMONIDINE TARTRATE\DORZOLAMIDE HYDROCHLORIDE\TIMOLOL MALEATE
     Dosage: UNK, 2X/DAY
  2. XALATAN [Suspect]
     Active Substance: LATANOPROST
     Indication: GLAUCOMA
     Dosage: UNK, AT NIGHTS
  3. UNIAL [Suspect]
     Active Substance: HYALURONATE SODIUM
     Dosage: UNK, EVERY 8 HOURS

REACTIONS (7)
  - Visual impairment [Unknown]
  - Spinal disorder [Unknown]
  - Abasia [Unknown]
  - Osteoarthritis [Unknown]
  - Osteoporosis [Unknown]
  - Urinary tract infection [Unknown]
  - Rheumatoid arthritis [Unknown]

NARRATIVE: CASE EVENT DATE: 201512
